FAERS Safety Report 13831590 (Version 4)
Quarter: 2017Q3

REPORT INFORMATION
  Report Type: Report from Study
  Country: US (occurrence: US)
  Receive Date: 20170803
  Receipt Date: 20170905
  Transmission Date: 20171127
  Serious: Yes (Death, Other)
  Sender: FDA-Public Use
  Company Number: US-009507513-1708USA000408

PATIENT
  Sex: Female
  Weight: 53.06 kg

DRUGS (13)
  1. ABRAXANE [Concomitant]
     Active Substance: PACLITAXEL
     Dosage: UNK, QW
     Dates: start: 20170502, end: 20170530
  2. KEYTRUDA [Suspect]
     Active Substance: PEMBROLIZUMAB
     Indication: LUNG NEOPLASM MALIGNANT
     Dosage: 200 MG, EVERY THREE WEEKS
     Route: 042
     Dates: start: 20170613, end: 20170707
  3. NORCO [Concomitant]
     Active Substance: ACETAMINOPHEN\HYDROCODONE BITARTRATE
  4. HYDROCHLOROTHIAZIDE (+) TRIAMTERENE [Concomitant]
     Active Substance: HYDROCHLOROTHIAZIDE\TRIAMTERENE
  5. ABRAXANE [Concomitant]
     Active Substance: PACLITAXEL
     Dosage: UNK
     Dates: start: 20170613, end: 2017
  6. CARBOPLATIN. [Concomitant]
     Active Substance: CARBOPLATIN
     Dosage: Q28D, D1, D8, D15
     Dates: start: 20170707
  7. AMLODIPINE [Concomitant]
     Active Substance: AMLODIPINE BESYLATE
  8. MS CONTIN [Concomitant]
     Active Substance: MORPHINE SULFATE
     Dosage: TABLETEXTENDED RELEASE
  9. CARBOPLATIN. [Concomitant]
     Active Substance: CARBOPLATIN
     Dosage: UNK
     Dates: start: 20170613, end: 2017
  10. LEVOTHYROXINE SODIUM. [Concomitant]
     Active Substance: LEVOTHYROXINE SODIUM
  11. ABRAXANE [Concomitant]
     Active Substance: PACLITAXEL
     Dosage: 100 MG/M2, UNK
     Dates: start: 20170707
  12. CARBOPLATIN. [Concomitant]
     Active Substance: CARBOPLATIN
     Dosage: UNK, QW
     Dates: start: 20170502, end: 20170530
  13. FOLIC ACID. [Concomitant]
     Active Substance: FOLIC ACID

REACTIONS (6)
  - Acute kidney injury [Recovering/Resolving]
  - Depression [Unknown]
  - Constipation [Unknown]
  - Nausea [Unknown]
  - Malignant neoplasm progression [Fatal]
  - Neuropathy peripheral [Unknown]

NARRATIVE: CASE EVENT DATE: 2017
